FAERS Safety Report 8135542-9 (Version None)
Quarter: 2012Q1

REPORT INFORMATION
  Report Type: 
  Country: None (occurrence: None)
  Receive Date: 20120103
  Receipt Date: 20111112
  Transmission Date: 20120608
  Serious: No
  Sender: FDA-Public Use
  Company Number: AE-2011-003415

PATIENT
  Age: 55 Year
  Sex: Male

DRUGS (8)
  1. PEGINTERFERON (PEGINTERFERON ALFA-2A) [Concomitant]
  2. LEVEMIR [Concomitant]
  3. JANUMET [Concomitant]
  4. INCIVEK [Suspect]
     Dosage: 2250 MG (750 MG, 3 IN 1 D), ORAL
     Route: 048
     Dates: start: 20110923
  5. METOPROLOL TARTRATE [Concomitant]
  6. NEBULIZER TREATMENT [Concomitant]
  7. RIBAVIRIN [Concomitant]
  8. GLUCOPHAGE [Concomitant]

REACTIONS (8)
  - MALAISE [None]
  - ANORECTAL DISCOMFORT [None]
  - HAEMATOCHEZIA [None]
  - DIARRHOEA [None]
  - DYSPNOEA [None]
  - SLEEP DISORDER [None]
  - HAEMORRHOIDS [None]
  - NAUSEA [None]
